FAERS Safety Report 4985006-6 (Version None)
Quarter: 2006Q2

REPORT INFORMATION
  Report Type: 
  Country: None (occurrence: None)
  Receive Date: 20060426
  Receipt Date: 20060426
  Transmission Date: 20061013
  Serious: Yes (Hospitalization)
  Sender: FDA-Public Use
  Company Number: None

PATIENT
  Age: 69 Year
  Sex: Male
  Weight: 77.9 kg

DRUGS (11)
  1. BETAPACE [Suspect]
     Indication: ATRIAL FIBRILLATION
     Dosage: 80 MG  BID  PO
     Route: 048
  2. LEVAQUIN [Suspect]
     Indication: TRACHEOBRONCHITIS
     Dosage: 500 MG  DAILY  PO
     Route: 048
     Dates: start: 20060418, end: 20060420
  3. ICAR-C PLUS [Concomitant]
  4. PREDNISONE TAB [Concomitant]
  5. PEPCID [Concomitant]
  6. LASIX [Concomitant]
  7. LANOXIN [Concomitant]
  8. NOVULIN [Concomitant]
  9. ALBUTEROL [Concomitant]
  10. CLONIDINE [Concomitant]
  11. MAALOX FAST BLOCKER [Concomitant]

REACTIONS (1)
  - MYOCARDIAL INFARCTION [None]
